FAERS Safety Report 19134199 (Version 2)
Quarter: 2021Q3

REPORT INFORMATION
  Report Type: Spontaneous
  Country: JP (occurrence: JP)
  Receive Date: 20210414
  Receipt Date: 20210906
  Transmission Date: 20211014
  Serious: Yes (Death, Life-Threatening, Hospitalization, Other)
  Sender: FDA-Public Use
  Company Number: JP-JNJFOC-A-CH2019-187895

PATIENT
  Age: 56 Year
  Sex: Female
  Weight: 54.6 kg

DRUGS (23)
  1. ELIQUIS [Concomitant]
     Active Substance: APIXABAN
     Indication: PULMONARY ARTERY THROMBOSIS
     Dosage: QD
     Dates: start: 20171124
  2. BAKTAR [Concomitant]
     Active Substance: SULFAMETHOXAZOLE\TRIMETHOPRIM
     Dosage: 1 DF, QD
     Dates: start: 20180522
  3. OPSUMIT [Suspect]
     Active Substance: MACITENTAN
     Indication: PULMONARY ARTERIAL HYPERTENSION
     Dosage: 10 MG, QD
     Route: 048
  4. LOXONIN [Concomitant]
     Active Substance: LOXOPROFEN SODIUM
     Indication: BACK PAIN
     Dosage: 1 DF, QD
  5. PARIET [Concomitant]
     Active Substance: RABEPRAZOLE SODIUM
     Indication: GASTRIC ULCER
     Dosage: 10 MG, QD
  6. ZOSYN [Concomitant]
     Active Substance: PIPERACILLIN SODIUM\TAZOBACTAM SODIUM
     Indication: PNEUMONIA
     Dosage: 4.5 G, QD
     Dates: start: 20180518
  7. SLOW?K [Concomitant]
     Active Substance: POTASSIUM CHLORIDE
     Indication: HYPOKALAEMIA
     Dosage: 3600 MG, QD
  8. PREDONINE [Concomitant]
     Active Substance: PREDNISOLONE
     Indication: MIXED CONNECTIVE TISSUE DISEASE
     Dosage: 12.5 MG, QD
  9. ANAEMETRO [Concomitant]
     Active Substance: METRONIDAZOLE
     Indication: PNEUMONIA
     Dosage: 1500 MG, QD
     Dates: start: 20180605
  10. UPTRAVI [Suspect]
     Active Substance: SELEXIPAG
     Route: 048
     Dates: start: 20170825, end: 20180316
  11. ALDACTONE A [Concomitant]
     Active Substance: SPIRONOLACTONE
     Dosage: 25 MG, QD
     Dates: start: 20180610
  12. WARFARIN [Suspect]
     Active Substance: WARFARIN
     Indication: PRODUCT USED FOR UNKNOWN INDICATION
     Route: 065
  13. FERRUM [Concomitant]
     Indication: IRON DEFICIENCY ANAEMIA
     Dosage: 100 MG, QD
  14. LIXIANA [Concomitant]
     Active Substance: EDOXABAN TOSYLATE
     Indication: PULMONARY ARTERY THROMBOSIS
     Dosage: 30 MG, QD
     Dates: end: 20171118
  15. CELLCEPT [Concomitant]
     Active Substance: MYCOPHENOLATE MOFETIL\MYCOPHENOLATE MOFETIL HYDROCHLORIDE
     Indication: MIXED CONNECTIVE TISSUE DISEASE
     Dosage: 750 MG, QD
     Dates: start: 20180601
  16. MEROPEN [Concomitant]
     Active Substance: MEROPENEM
     Indication: PNEUMONIA
     Dosage: 3 G, QD
     Dates: start: 20180606
  17. LASIX [Concomitant]
     Active Substance: FUROSEMIDE
     Dosage: 40 MG, QD
  18. AZANIN [Concomitant]
     Active Substance: AZATHIOPRINE
     Indication: MIXED CONNECTIVE TISSUE DISEASE
     Dosage: 25 MG, QD
  19. EDIROL [Concomitant]
     Active Substance: ELDECALCITOL
     Dosage: 0.75 MCG, QD
     Dates: start: 20180522
  20. UPTRAVI [Suspect]
     Active Substance: SELEXIPAG
     Indication: PULMONARY ARTERIAL HYPERTENSION
     Route: 048
     Dates: start: 20170823, end: 20170824
  21. UPTRAVI [Suspect]
     Active Substance: SELEXIPAG
     Route: 048
     Dates: start: 20180317, end: 20180616
  22. SILDENAFIL. [Suspect]
     Active Substance: SILDENAFIL
     Indication: PULMONARY ARTERIAL HYPERTENSION
     Dosage: 60 MG, QD
     Route: 065
  23. DIHYDROCODEINE PHOSPHATE [Concomitant]
     Active Substance: DIHYDROCODEINE PHOSPHATE
     Indication: INTERSTITIAL LUNG DISEASE
     Dosage: 3 G, QD

REACTIONS (17)
  - Haemorrhage subcutaneous [Unknown]
  - Hypoxia [Unknown]
  - Intra-abdominal haemorrhage [Unknown]
  - Transfusion [Unknown]
  - Multiple organ dysfunction syndrome [Fatal]
  - Dyspnoea [Unknown]
  - Retroperitoneal haemorrhage [Unknown]
  - Interstitial lung disease [Fatal]
  - Shock [Unknown]
  - Acute respiratory failure [Unknown]
  - Arterial rupture [Unknown]
  - Arterial haemorrhage [Unknown]
  - Abdominal distension [Unknown]
  - Abdominal compartment syndrome [Unknown]
  - Pneumonia bacterial [Unknown]
  - Pyrexia [Unknown]
  - Pulmonary hypertension [Unknown]

NARRATIVE: CASE EVENT DATE: 20180511
